FAERS Safety Report 15540518 (Version 3)
Quarter: 2023Q2

REPORT INFORMATION
  Report Type: Spontaneous
  Country: SE (occurrence: SE)
  Receive Date: 20181023
  Receipt Date: 20230504
  Transmission Date: 20230721
  Serious: Yes (Hospitalization, Other)
  Sender: FDA-Public Use
  Company Number: None

PATIENT
  Age: 63 Year
  Sex: Male

DRUGS (6)
  1. MYCOPHENOLATE MOFETIL [Suspect]
     Active Substance: MYCOPHENOLATE MOFETIL
     Indication: Immunosuppression
     Dosage: ALSO 0.25 MG TWICE DAILY
     Route: 065
  2. TACROLIMUS [Suspect]
     Active Substance: TACROLIMUS
     Indication: Immunosuppressant drug therapy
     Route: 065
  3. EVEROLIMUS [Suspect]
     Active Substance: EVEROLIMUS
     Indication: Immunosuppression
     Dosage: TARGET 3 TO 6 MICROGRAM PER LITRE, UNKNOWN FREQ
     Route: 065
  4. RIBAVIRIN [Suspect]
     Active Substance: RIBAVIRIN
     Indication: Hepatitis E
     Dosage: 800MG DAILY
     Route: 065
  5. PREDNISOLONE [Suspect]
     Active Substance: PREDNISOLONE
     Indication: Immunosuppression
     Dosage: 7.5 MG, QD,ALSO RECEIVED 10 MG
     Route: 065
  6. PREDNISOLONE [Concomitant]
     Active Substance: PREDNISOLONE
     Indication: Immunosuppression

REACTIONS (6)
  - Pericardial effusion [Unknown]
  - Hepatic enzyme increased [Recovered/Resolved]
  - Gout [Recovered/Resolved]
  - Haemangioma of liver [Recovered/Resolved]
  - Anaemia [Unknown]
  - Hepatitis E [Recovered/Resolved]
